FAERS Safety Report 5800638-0 (Version None)
Quarter: 2008Q3

REPORT INFORMATION
  Report Type: 
  Country: None (occurrence: None)
  Receive Date: 20080703
  Receipt Date: 20080623
  Transmission Date: 20090109
  Serious: Yes (Other)
  Sender: FDA-Public Use
  Company Number: FR-ROCHE-527085

PATIENT
  Age: 74 Year
  Sex: Female
  Weight: 46 kg

DRUGS (1)
  1. BONIVA [Suspect]
     Route: 065
     Dates: start: 20070401, end: 20071001

REACTIONS (2)
  - FAILURE OF IMPLANT [None]
  - JAW DISORDER [None]
